FAERS Safety Report 7157639-2 (Version None)
Quarter: 2010Q4

REPORT INFORMATION
  Report Type: 
  Country: None (occurrence: None)
  Receive Date: 20101214
  Receipt Date: 20100309
  Transmission Date: 20110411
  Serious: No
  Sender: FDA-Public Use
  Company Number: US-ASTRAZENECA-2010SE10154

PATIENT
  Age: 79 Year
  Sex: Female
  Weight: 73.5 kg

DRUGS (1)
  1. CRESTOR [Suspect]
     Indication: BLOOD CHOLESTEROL INCREASED
     Route: 048
     Dates: start: 20100201

REACTIONS (2)
  - COAGULATION TIME PROLONGED [None]
  - FAECES DISCOLOURED [None]
